FAERS Safety Report 10080956 (Version 2)
Quarter: 2014Q2

REPORT INFORMATION
  Report Type: Spontaneous
  Country: NZ (occurrence: NZ)
  Receive Date: 20140416
  Receipt Date: 20140508
  Transmission Date: 20141212
  Serious: Yes (Hospitalization)
  Sender: FDA-Public Use
  Company Number: NZ-B.I. PHARMACEUTICALS,INC./RIDGEFIELD-2014-BI-16273AU

PATIENT
  Sex: Male

DRUGS (3)
  1. PRADAXA [Suspect]
     Indication: PRODUCT USED FOR UNKNOWN INDICATION
     Dosage: 220 MG
     Route: 065
     Dates: start: 20120904
  2. ATORVASTATIN [Concomitant]
     Route: 065
     Dates: start: 2010
  3. METOPROLOL [Concomitant]
     Route: 065
     Dates: start: 2012

REACTIONS (1)
  - Cerebrovascular accident [Recovered/Resolved with Sequelae]
